FAERS Safety Report 11166031 (Version 1)
Quarter: 2015Q2

REPORT INFORMATION
  Report Type: Spontaneous
  Country: GB (occurrence: GB)
  Receive Date: 20150604
  Receipt Date: 20150604
  Transmission Date: 20150821
  Serious: Yes (Hospitalization, Other)
  Sender: FDA-Public Use
  Company Number: GB-JNJFOC-2008000674

PATIENT
  Age: 42 Year
  Sex: Male
  Weight: 70 kg

DRUGS (4)
  1. ACETAMINOPHEN. [Suspect]
     Active Substance: ACETAMINOPHEN
     Indication: LOWER RESPIRATORY TRACT INFECTION
     Dosage: DAILY DOSE TEXT: 6 DOSES TOTAL OVER 4-DAY PERIOD
     Route: 042
  2. ACETAMINOPHEN. [Suspect]
     Active Substance: ACETAMINOPHEN
     Indication: RESPIRATORY FAILURE
     Dosage: DAILY DOSE TEXT: 6 DOSES TOTAL OVER 4-DAY PERIOD
     Route: 042
  3. ACETAMINOPHEN. [Suspect]
     Active Substance: ACETAMINOPHEN
     Indication: LOWER RESPIRATORY TRACT INFECTION
     Dosage: DAILY DOSE TEXT: 6 DOSES TOTAL OVER 4-DAY PERIOD
     Route: 042
  4. ACETAMINOPHEN. [Suspect]
     Active Substance: ACETAMINOPHEN
     Indication: RESPIRATORY FAILURE
     Dosage: DAILY DOSE TEXT: 6 DOSES TOTAL OVER 4-DAY PERIOD
     Route: 042

REACTIONS (3)
  - Acute hepatic failure [Recovered/Resolved]
  - Hepatic encephalopathy [Recovered/Resolved]
  - Off label use [Unknown]
